FAERS Safety Report 9052787 (Version 4)
Quarter: 2013Q2

REPORT INFORMATION
  Report Type: Spontaneous
  Country: US (occurrence: US)
  Receive Date: 20130207
  Receipt Date: 20130530
  Transmission Date: 20140414
  Serious: Yes (Hospitalization)
  Sender: FDA-Public Use
  Company Number: US-CELGENEUS-163-21880-13014729

PATIENT
  Age: 67 Year
  Sex: Female

DRUGS (14)
  1. REVLIMID [Suspect]
     Indication: PLASMA CELL MYELOMA
     Dosage: 25 MILLIGRAM
     Route: 048
     Dates: start: 20120731
  2. REGLAN [Concomitant]
     Indication: NAUSEA
     Dosage: 40 MILLIGRAM
     Route: 041
  3. REGLAN [Concomitant]
     Route: 048
  4. ZOFRAN [Concomitant]
     Indication: NAUSEA
     Route: 065
  5. ZOFRAN [Concomitant]
     Route: 048
  6. PROMETHAZINE HCL [Concomitant]
     Indication: PRODUCT USED FOR UNKNOWN INDICATION
     Route: 041
  7. LORTAB [Concomitant]
     Indication: PAIN
     Route: 065
     Dates: end: 20130307
  8. VALTREX [Concomitant]
     Indication: HERPES ZOSTER
     Dosage: 1000 MILLIGRAM
     Route: 065
     Dates: start: 2010
  9. VALTREX [Concomitant]
     Dosage: 2 GRAM
     Route: 048
  10. AMLODIPINE BESYLATE [Concomitant]
     Indication: PRODUCT USED FOR UNKNOWN INDICATION
     Route: 048
  11. MARINOL [Concomitant]
     Indication: NAUSEA
     Dosage: 10 MILLIGRAM
     Route: 065
     Dates: start: 201210
  12. DRONABINOL [Concomitant]
     Indication: PRODUCT USED FOR UNKNOWN INDICATION
     Route: 048
  13. HYDROCODONE ACETAMINOPHEN [Concomitant]
     Indication: PRODUCT USED FOR UNKNOWN INDICATION
     Route: 048
  14. LEVOFLOXACIN [Concomitant]
     Indication: PRODUCT USED FOR UNKNOWN INDICATION
     Route: 048
     Dates: end: 20130307

REACTIONS (1)
  - Small intestinal obstruction [Recovered/Resolved]
